FAERS Safety Report 17420711 (Version 2)
Quarter: 2021Q2

REPORT INFORMATION
  Report Type: Spontaneous
  Country: PL (occurrence: PL)
  Receive Date: 20200214
  Receipt Date: 20210611
  Transmission Date: 20210716
  Serious: Yes (Death, Hospitalization)
  Sender: FDA-Public Use
  Company Number: PL-UNICHEM PHARMACEUTICALS (USA) INC-UCM202002-000180

PATIENT
  Age: 8 Year
  Sex: Female

DRUGS (2)
  1. DIVALPROEX SODIUM. [Suspect]
     Active Substance: DIVALPROEX SODIUM
     Dosage: 350?MG?0?350?MG
  2. DIVALPROEX SODIUM. [Suspect]
     Active Substance: DIVALPROEX SODIUM
     Indication: MYOCLONIC EPILEPSY

REACTIONS (12)
  - Cardiovascular insufficiency [Fatal]
  - Condition aggravated [Fatal]
  - Abdominal pain [Unknown]
  - Liver injury [Fatal]
  - Respiratory failure [Fatal]
  - Vomiting [Unknown]
  - Acute hepatic failure [Fatal]
  - Circulatory collapse [Fatal]
  - Pancreatitis acute [Fatal]
  - Jaundice [Fatal]
  - Multiple organ dysfunction syndrome [Fatal]
  - Haemorrhagic diathesis [Fatal]
